FAERS Safety Report 5107251-1 (Version None)
Quarter: 2006Q3

REPORT INFORMATION
  Report Type: 
  Country: None (occurrence: None)
  Receive Date: 20060914
  Receipt Date: 20060717
  Transmission Date: 20061208
  Serious: No
  Sender: FDA-Public Use
  Company Number: 06071810

PATIENT
  Age: 72 Year
  Sex: Female

DRUGS (4)
  1. HALOBETASOL PROPIONATE OINTMENT, 0.05% 15G [Suspect]
     Indication: ECZEMA NUMMULAR
     Dosage: 1APP, HS, TOPICAL
     Route: 061
     Dates: start: 20060615
  2. PROTOPIC [Suspect]
     Indication: ECZEMA NUMMULAR
     Dosage: 1APP, HS, TOPICAL
     Route: 061
  3. FLUOCINONIDE [Concomitant]
  4. PROTOPIC [Concomitant]

REACTIONS (1)
  - SKIN CANCER [None]
